FAERS Safety Report 15940586 (Version 4)
Quarter: 2019Q2

REPORT INFORMATION
  Report Type: Report from Study
  Country: US (occurrence: US)
  Receive Date: 20190208
  Receipt Date: 20190426
  Transmission Date: 20190711
  Serious: Yes (Other)
  Sender: FDA-Public Use
  Company Number: US-PFIZER INC-2018459543

PATIENT
  Age: 56 Year
  Sex: Female

DRUGS (3)
  1. IBRANCE [Suspect]
     Active Substance: PALBOCICLIB
     Indication: BREAST CANCER FEMALE
     Dosage: 125 MG, CYCLIC (DAILY 21 DAYS ON AND 7 DAYS OFF)
     Route: 048
     Dates: start: 20181030, end: 20181127
  2. IBRANCE [Suspect]
     Active Substance: PALBOCICLIB
     Dosage: 125 MG, CYCLIC (DAILY 21 DAYS ON AND 7 DAYS OFF)
     Route: 048
     Dates: end: 20190410
  3. IBRANCE [Suspect]
     Active Substance: PALBOCICLIB
     Dosage: 125 MG, CYCLIC (DAILY 21 DAYS ON AND 7 DAYS OFF)
     Dates: start: 20181206

REACTIONS (17)
  - Dysgeusia [Unknown]
  - Vomiting [Not Recovered/Not Resolved]
  - Liver disorder [Unknown]
  - Stomatitis [Recovered/Resolved]
  - Nausea [Not Recovered/Not Resolved]
  - Bone marrow failure [Recovering/Resolving]
  - Decreased appetite [Unknown]
  - Constipation [Recovering/Resolving]
  - Dry mouth [Recovering/Resolving]
  - Leukopenia [Recovering/Resolving]
  - Cough [Not Recovered/Not Resolved]
  - Pain in extremity [Unknown]
  - Intentional product use issue [Unknown]
  - Back pain [Recovered/Resolved]
  - Muscular weakness [Unknown]
  - Neoplasm progression [Unknown]
  - Fatigue [Not Recovered/Not Resolved]

NARRATIVE: CASE EVENT DATE: 2018
